FAERS Safety Report 9708765 (Version 1)
Quarter: 2013Q4

REPORT INFORMATION
  Report Type: Spontaneous
  Country: IT (occurrence: IT)
  Receive Date: 20131125
  Receipt Date: 20131125
  Transmission Date: 20140711
  Serious: Yes (Hospitalization)
  Sender: FDA-Public Use
  Company Number: IT-GLAXOSMITHKLINE-B0947412A

PATIENT
  Age: 74 Year
  Sex: Female

DRUGS (6)
  1. RYTHMOL [Suspect]
     Indication: PRODUCT USED FOR UNKNOWN INDICATION
     Dosage: 140MG PER DAY
     Route: 042
     Dates: start: 20131114, end: 20131114
  2. BISOPROLOL FUMARATE [Concomitant]
  3. CARDIOASPIRIN [Concomitant]
  4. LANSOX [Concomitant]
  5. MICARDIS PLUS [Concomitant]
  6. FULCRO [Concomitant]

REACTIONS (4)
  - Bradycardia [Recovered/Resolved]
  - Hypotension [Recovered/Resolved]
  - Malaise [Recovered/Resolved]
  - Nausea [Recovered/Resolved]
